FAERS Safety Report 11038776 (Version 2)
Quarter: 2015Q2

REPORT INFORMATION
  Report Type: Spontaneous
  Country: US (occurrence: US)
  Receive Date: 20150416
  Receipt Date: 20150423
  Transmission Date: 20150821
  Serious: Yes (Other)
  Sender: FDA-Public Use
  Company Number: US-PFIZER INC-2015130454

PATIENT
  Sex: Female

DRUGS (1)
  1. PRISTIQ EXTENDED RELEASE [Suspect]
     Active Substance: DESVENLAFAXINE SUCCINATE
     Dosage: UNK

REACTIONS (8)
  - Pancreatitis [Unknown]
  - Nausea [Unknown]
  - Intentional product misuse [Unknown]
  - Liver disorder [Unknown]
  - Drug ineffective [Unknown]
  - Depressed mood [Unknown]
  - Decreased appetite [Unknown]
  - Weight decreased [Unknown]
